FAERS Safety Report 8118820-9 (Version None)
Quarter: 2012Q1

REPORT INFORMATION
  Report Type: 
  Country: None (occurrence: None)
  Receive Date: 20120202
  Receipt Date: 20120118
  Transmission Date: 20120608
  Serious: Yes (Life-Threatening)
  Sender: FDA-Public Use
  Company Number: TCI2011A05864

PATIENT
  Age: 58 Year
  Sex: Male

DRUGS (9)
  1. LACTEC D (GLUCOSE, SODIUM LACTATE, POTASSIUM CHLORIDE, CALCIUM CHLORID [Concomitant]
  2. ARTFED (MALTOSE, SODIUM ACETATE, POTASSIUM  CHLORIDE, SODIUM CHLORIDE, [Concomitant]
  3. DIPRIVAN [Concomitant]
  4. HYDANTOL F (PEHNOBARBITAL, PHENYTOIN, CAFFEINE AND SODIUM BENZOATE) [Suspect]
     Indication: CONVULSION
     Dosage: 6 TAB (2 TAB.3 IN 1 D) PER ORAL
     Route: 048
     Dates: start: 20110730, end: 20110803
  5. POTACOL-R (MALTOSE, SODIUM LACTATE, POTASSIUM CHLORIDE, SODIUM CHLORID [Concomitant]
  6. LANSOPRAZOLE [Suspect]
     Indication: DUODENAL ULCER
     Dosage: 30 MG (30 MG, 1 - 2) PER ORAL
     Route: 048
     Dates: start: 20110730, end: 20110802
  7. ALEVIATIN (PHENYTOIN SODIUM) [Concomitant]
  8. DIAZEPAM [Concomitant]
  9. NOVORIN R (XYLOMETAZOLINE HYDROCHLORIDE) [Concomitant]

REACTIONS (6)
  - RHABDOMYOLYSIS [None]
  - MYOCARDIAL INFARCTION [None]
  - RENAL DISORDER [None]
  - BLOOD URINE PRESENT [None]
  - TYPE 1 DIABETES MELLITUS [None]
  - PROTEIN URINE PRESENT [None]
